FAERS Safety Report 10356933 (Version 5)
Quarter: 2014Q4

REPORT INFORMATION
  Report Type: Spontaneous
  Country: US (occurrence: US)
  Receive Date: 20140801
  Receipt Date: 20141003
  Transmission Date: 20150528
  Serious: Yes (Other)
  Sender: FDA-Public Use
  Company Number: US-JNJFOC-20140715738

PATIENT
  Sex: Male
  Weight: 104.33 kg

DRUGS (1)
  1. NUCYNTA ER [Suspect]
     Active Substance: TAPENTADOL HYDROCHLORIDE
     Indication: PAIN
     Dosage: 4 TIMES DAILY, STARTED IN JAN OR FEB
     Route: 048
     Dates: start: 2014

REACTIONS (9)
  - Dyskinesia [Unknown]
  - Dental operation [Unknown]
  - Dizziness [Unknown]
  - Tremor [Recovered/Resolved]
  - Altered visual depth perception [Unknown]
  - Drug tolerance [Unknown]
  - Inappropriate schedule of drug administration [Unknown]
  - Off label use [Unknown]
  - Balance disorder [Recovered/Resolved]

NARRATIVE: CASE EVENT DATE: 2014
